FAERS Safety Report 24254354 (Version 3)
Quarter: 2024Q3

REPORT INFORMATION
  Report Type: Report from Study
  Country: DE (occurrence: DE)
  Receive Date: 20240827
  Receipt Date: 20240912
  Transmission Date: 20241017
  Serious: Yes (Death, Hospitalization)
  Sender: ALNYLAM PHARMACEUTICALS
  Company Number: DE-ALNYLAM PHARMACEUTICALS, INC.-ALN-2024-004570

PATIENT

DRUGS (8)
  1. OXLUMO [Suspect]
     Active Substance: LUMASIRAN
     Indication: Primary hyperoxaluria
     Dosage: UNK
     Route: 058
     Dates: start: 20240618, end: 20240618
  2. OXLUMO [Suspect]
     Active Substance: LUMASIRAN
     Dosage: UNK
     Route: 058
     Dates: start: 20240716, end: 20240716
  3. APIXABAN [Concomitant]
     Active Substance: APIXABAN
     Indication: Atrial thrombosis
     Dosage: 5 MILLIGRAM
     Route: 048
     Dates: start: 20231213, end: 20240816
  4. FERRLECIT [Concomitant]
     Active Substance: SODIUM FERRIC GLUCONATE COMPLEX
     Indication: Dialysis
     Dosage: 4 MILLIGRAM, WEEKLY ON DIALYSIS
     Route: 042
     Dates: start: 20240713, end: 20240816
  5. EPOETIN BETA [Concomitant]
     Active Substance: ERYTHROPOIETIN
     Indication: Dialysis
     Dosage: 4000 ENZYME UNIT, WEEKLY ON DIALYSIS
     Route: 058
     Dates: start: 20240713, end: 20240816
  6. SIMVASTATIN [Concomitant]
     Active Substance: SIMVASTATIN
     Indication: Product used for unknown indication
     Dosage: 40 MILLIGRAM
     Route: 048
     Dates: start: 20240713, end: 20240816
  7. HYDROMORPHONE [Concomitant]
     Active Substance: HYDROMORPHONE
     Indication: Product used for unknown indication
     Dosage: 1.3 MILLIGRAM, PRN
     Route: 048
     Dates: start: 20240713
  8. CISPLATIN;GEMCITABINE [Concomitant]
     Indication: Chemotherapy
     Dosage: UNK
     Route: 042
     Dates: start: 20240711, end: 20240711

REACTIONS (2)
  - Transitional cell carcinoma metastatic [Fatal]
  - Diarrhoea [Recovering/Resolving]

NARRATIVE: CASE EVENT DATE: 20240720
